FAERS Safety Report 7811790-X (Version None)
Quarter: 2011Q4

REPORT INFORMATION
  Report Type: 
  Country: None (occurrence: None)
  Receive Date: 20111013
  Receipt Date: 20110808
  Transmission Date: 20120403
  Serious: Yes (Hospitalization, Other)
  Sender: FDA-Public Use
  Company Number: PHHO2008DE10044

PATIENT
  Sex: Male
  Weight: 84 kg

DRUGS (6)
  1. SANDIMMUNE [Suspect]
     Dosage: 125 MG, BID
     Route: 048
  2. METHYLPREDNISOLONE [Concomitant]
  3. SANDIMMUNE [Suspect]
     Dosage: 225 MG, BID
     Route: 048
  4. NO TREATMENT RECEIVED [Suspect]
     Indication: RENAL TRANSPLANT
     Dosage: UNK
  5. MYFORTIC [Suspect]
     Indication: RENAL TRANSPLANT
     Dosage: 360 MG, BID
     Route: 048
     Dates: start: 20080722
  6. SANDIMMUNE [Suspect]
     Indication: RENAL TRANSPLANT
     Dosage: 200 MG, BID
     Route: 048
     Dates: start: 20080722

REACTIONS (9)
  - LYMPHOCELE [None]
  - RENAL TUBULAR NECROSIS [None]
  - SEROMA [None]
  - HYDRONEPHROSIS [None]
  - NEPHROCALCINOSIS [None]
  - RENAL IMPAIRMENT [None]
  - RENAL TUBULAR DISORDER [None]
  - COMPLICATIONS OF TRANSPLANTED KIDNEY [None]
  - DIALYSIS [None]
